FAERS Safety Report 7397338-5 (Version None)
Quarter: 2011Q2

REPORT INFORMATION
  Report Type: 
  Country: None (occurrence: None)
  Receive Date: 20110406
  Receipt Date: 20110401
  Transmission Date: 20111010
  Serious: No
  Sender: FDA-Public Use
  Company Number: US-PFIZER INC-2011073341

PATIENT
  Sex: Female
  Weight: 53.515 kg

DRUGS (3)
  1. SYNTHROID [Concomitant]
     Indication: THYROID DISORDER
     Dosage: 100 UG, UNK
     Route: 048
  2. LYRICA [Suspect]
     Indication: TRIGEMINAL NEURALGIA
     Dosage: 50MG DAILY
     Route: 048
     Dates: start: 20110331
  3. PREDNISONE [Concomitant]
     Dosage: 25 MG, UNK
     Route: 048

REACTIONS (4)
  - OROPHARYNGEAL DISCOMFORT [None]
  - ORAL PRURITUS [None]
  - PARAESTHESIA ORAL [None]
  - MUSCLE SPASMS [None]
